FAERS Safety Report 8738391 (Version 5)
Quarter: 2013Q1

REPORT INFORMATION
  Report Type: Spontaneous
  Country: US (occurrence: US)
  Receive Date: 20120823
  Receipt Date: 20130325
  Transmission Date: 20140127
  Serious: Yes (Hospitalization, Disabling, Other)
  Sender: FDA-Public Use
  Company Number: US-009507513-1208USA005568

PATIENT
  Sex: Female

DRUGS (13)
  1. FOSAMAX [Suspect]
     Indication: OSTEOPOROSIS
     Dosage: 70 MG, UNK
     Route: 048
     Dates: end: 20070124
  2. FOSAMAX [Suspect]
     Indication: OSTEOPOROSIS PROPHYLAXIS
  3. BONIVA [Suspect]
     Indication: OSTEOPOROSIS
     Dosage: 150 MG, UNK
     Dates: start: 20070321, end: 20110522
  4. BONIVA [Suspect]
     Indication: OSTEOPOROSIS PROPHYLAXIS
  5. ADVAIR [Concomitant]
     Indication: CHRONIC OBSTRUCTIVE PULMONARY DISEASE
     Dosage: UNK
     Dates: start: 2000
  6. CLONIDINE [Concomitant]
     Indication: HYPERTENSION
     Dosage: UNK
  7. COZAAR [Concomitant]
     Indication: HYPERTENSION
     Dosage: UNK
     Route: 048
     Dates: start: 2001
  8. HYDROCHLOROTHIAZIDE [Concomitant]
     Indication: HYPERTENSION
     Dosage: UNK
     Dates: start: 2001
  9. WELCHOL [Concomitant]
     Indication: HYPERCHOLESTEROLAEMIA
     Dosage: UNK
  10. OMEGA-3 [Concomitant]
     Indication: HYPERCHOLESTEROLAEMIA
  11. NASONEX [Concomitant]
     Indication: RHINITIS
  12. OS-CAL D [Concomitant]
  13. VITAMIN D (UNSPECIFIED) [Concomitant]

REACTIONS (40)
  - Femur fracture [Unknown]
  - Open reduction of fracture [Unknown]
  - Osteoporosis [Not Recovered/Not Resolved]
  - Low turnover osteopathy [Not Recovered/Not Resolved]
  - Femur fracture [Unknown]
  - Squamous cell carcinoma [Unknown]
  - Basal cell carcinoma [Unknown]
  - Tachycardia [Recovered/Resolved]
  - Leukocytosis [Recovered/Resolved]
  - Hypomagnesaemia [Recovered/Resolved]
  - Skin neoplasm excision [Unknown]
  - Tonsillectomy [Unknown]
  - Adenoidectomy [Unknown]
  - Anaemia [Unknown]
  - Carpal tunnel decompression [Unknown]
  - Joint arthroplasty [Unknown]
  - Rotator cuff repair [Unknown]
  - Ovarian cystectomy [Unknown]
  - Cataract operation [Unknown]
  - Hypoacusis [Unknown]
  - Femur fracture [Unknown]
  - Fall [Unknown]
  - Osteopenia [Unknown]
  - Osteoarthritis [Unknown]
  - Rheumatoid arthritis [Unknown]
  - Spinal compression fracture [Unknown]
  - Insomnia [Unknown]
  - Restless legs syndrome [Unknown]
  - Bronchiectasis [Unknown]
  - Vocal cord polyp [Unknown]
  - Tinnitus [Unknown]
  - Nephrolithiasis [Unknown]
  - Stress urinary incontinence [Unknown]
  - Rotator cuff syndrome [Unknown]
  - Hypertonic bladder [Unknown]
  - Spinal osteoarthritis [Unknown]
  - Spinal column stenosis [Unknown]
  - Sciatica [Recovered/Resolved]
  - Gastrooesophageal reflux disease [Unknown]
  - Constipation [Unknown]
